FAERS Safety Report 5305961-4 (Version None)
Quarter: 2007Q2

REPORT INFORMATION
  Report Type: 
  Country: None (occurrence: None)
  Receive Date: 20070424
  Receipt Date: 20070413
  Transmission Date: 20071010
  Serious: Yes (Hospitalization)
  Sender: FDA-Public Use
  Company Number: US-MERCK-0704USA03859

PATIENT
  Age: 46 Year
  Sex: Male

DRUGS (16)
  1. HYDRODIURIL [Suspect]
     Route: 048
     Dates: end: 20040501
  2. METHADONE HYDROCHLORIDE [Concomitant]
     Route: 065
  3. DIAZEPAM [Concomitant]
     Route: 065
  4. METHOCARBAMOL [Concomitant]
     Route: 065
  5. HYDROCODONE BITARTRATE [Concomitant]
     Route: 065
  6. ACETAMINOPHEN [Suspect]
     Route: 065
     Dates: end: 20040501
  7. CEPHALEXIN [Suspect]
     Route: 065
  8. ASPIRIN [Suspect]
     Route: 065
     Dates: end: 20040501
  9. FUROSEMIDE [Concomitant]
     Route: 065
  10. CYANOCOBALAMIN [Concomitant]
     Route: 065
  11. VITAMINS (UNSPECIFIED) [Concomitant]
     Route: 065
  12. VITAMIN A [Concomitant]
     Route: 065
  13. CALCIUM CITRATE [Concomitant]
     Route: 065
  14. ZINC (UNSPECIFIED) [Suspect]
     Route: 065
  15. ASCORBIC ACID [Concomitant]
     Route: 065
  16. METOPROLOL TARTRATE [Suspect]
     Route: 065
     Dates: end: 20040501

REACTIONS (5)
  - ANAEMIA [None]
  - COPPER DEFICIENCY [None]
  - FEBRILE NEUTROPENIA [None]
  - NEUTROPENIA [None]
  - POISONING [None]
